FAERS Safety Report 8799139 (Version 1)
Quarter: 2012Q4

REPORT INFORMATION
  Report Type: Spontaneous
  Country: US (occurrence: None)
  Receive Date: 20120914
  Receipt Date: 20120914
  Transmission Date: 20130627
  Serious: Yes (Other)
  Sender: FDA-Public Use
  Company Number: 1413484

PATIENT
  Sex: Female

DRUGS (1)
  1. METRONIDAZOLE [Suspect]
     Indication: CLOSTRIDIUM DIFFICILE COLITIS

REACTIONS (8)
  - Gait disturbance [None]
  - Fall [None]
  - Head injury [None]
  - Neuropathy peripheral [None]
  - Nausea [None]
  - Vomiting [None]
  - Drug prescribing error [None]
  - Incorrect dose administered [None]
